FAERS Safety Report 20707498 (Version 4)
Quarter: 2024Q2

REPORT INFORMATION
  Report Type: Spontaneous
  Country: US (occurrence: US)
  Receive Date: 20220413
  Receipt Date: 20240524
  Transmission Date: 20240715
  Serious: No
  Sender: FDA-Public Use
  Company Number: US-SA-SAC20220407001475

PATIENT
  Age: 42 Year
  Sex: Female

DRUGS (3)
  1. KEVZARA [Suspect]
     Active Substance: SARILUMAB
     Indication: Rheumatoid arthritis
     Dosage: 200 MG, QOW
     Route: 058
     Dates: start: 202111
  2. KEVZARA [Suspect]
     Active Substance: SARILUMAB
     Indication: Sjogren^s syndrome
  3. KEVZARA [Suspect]
     Active Substance: SARILUMAB
     Indication: Keratitis

REACTIONS (4)
  - Dehydration [Unknown]
  - Sinusitis [Unknown]
  - Product use in unapproved indication [Unknown]
  - Product dose omission in error [Unknown]

NARRATIVE: CASE EVENT DATE: 20211101
